FAERS Safety Report 7277438-0 (Version None)
Quarter: 2011Q1

REPORT INFORMATION
  Report Type: 
  Country: None (occurrence: None)
  Receive Date: 20110207
  Receipt Date: 20110131
  Transmission Date: 20110831
  Serious: Yes (Other)
  Sender: FDA-Public Use
  Company Number: US-BRISTOL-MYERS SQUIBB COMPANY-15520315

PATIENT
  Age: 55 Year
  Sex: Male
  Weight: 102 kg

DRUGS (4)
  1. ATENOLOL [Concomitant]
     Indication: HYPERTENSION
     Dosage: ATENOLOL/WATER PILL
  2. ABILIFY [Suspect]
     Dosage: 2010
     Route: 065
  3. LIPITOR [Suspect]
     Indication: BLOOD CHOLESTEROL INCREASED
     Dosage: FILM COATED TABS,AT NIGHT,2010.
     Route: 048
     Dates: start: 20040101
  4. LISINOPRIL AND HYDROCHLOROTHIAZIDE [Concomitant]
     Dosage: 1DF=20MG/25MG

REACTIONS (10)
  - CARDIAC DISORDER [None]
  - CHEST PAIN [None]
  - DIARRHOEA [None]
  - OVERWEIGHT [None]
  - DYSPNOEA [None]
  - EXERCISE LACK OF [None]
  - DRY MOUTH [None]
  - PULMONARY FUNCTION TEST ABNORMAL [None]
  - NEOPLASM MALIGNANT [None]
  - FEAR [None]
